FAERS Safety Report 7995796-6 (Version None)
Quarter: 2011Q4

REPORT INFORMATION
  Report Type: 
  Country: None (occurrence: None)
  Receive Date: 20111220
  Receipt Date: 20111208
  Transmission Date: 20120403
  Serious: Yes (Other)
  Sender: FDA-Public Use
  Company Number: FR-CEPHALON-INT-C-99180022

PATIENT
  Sex: Male
  Weight: 71 kg

DRUGS (10)
  1. MODAFANIL [Suspect]
     Indication: DEMENTIA
     Dosage: (DOSE:200, UNIT:MG, FORM:TABLET, INTAKE:2 PER DAY, RATE:1/1 DAYS)
     Route: 048
     Dates: start: 19920408, end: 19920926
  2. SKENAN LP [Concomitant]
     Dosage: (DOSE:, RATE:1/1 DAYS)
     Route: 048
     Dates: start: 19920723
  3. NITRODERM [Concomitant]
     Dosage: (DOSE:10, UNIT:MG, INTAKE:1 PER DAY, RATE:1/1 DAYS)
     Route: 062
  4. PERSANTINE [Concomitant]
     Dosage: (DOSE:, RATE:1/1 DAYS)
     Route: 048
     Dates: end: 19920727
  5. BRICANYL [Concomitant]
     Dosage: (DOSE:, RATE:1/1 DAYS)
     Route: 048
  6. VENTOLINE BUVABLE SOLUTION BUVABLE [Concomitant]
     Dosage: DAILY: 3 TSP; UNIT: 1 TSP; (DOSE:1, UNIT:CAC, INTAKE:3 PER DAY, RATE:1/1 DAYS)
     Route: 048
  7. MS CONTIN [Concomitant]
     Dosage: (DOSE:10, UNIT:MG, INTAKE:3 PER DAY, RATE:1/1 DAYS)
     Route: 048
     Dates: end: 19920723
  8. ASPEGIC 325 [Concomitant]
     Dosage: (DOSE:, RATE:1/1 DAYS)
     Route: 048
     Dates: start: 19920727
  9. IMOVANE [Concomitant]
     Dosage: (DOSE:7.5, UNIT:MG, INTAKE:1 PER DAY, RATE:1/1 DAYS)
     Route: 048
  10. LASILIX - LASILIX FAIBLE [Concomitant]
     Dosage: (DOSE:20, UNIT:MG, INTAKE:1 PER DAY, RATE:1/1 DAYS)
     Route: 048

REACTIONS (1)
  - ASTHMA [None]
